FAERS Safety Report 10656766 (Version 1)
Quarter: 2014Q4

REPORT INFORMATION
  Report Type: Spontaneous
  Country: US (occurrence: US)
  Receive Date: 20141217
  Receipt Date: 20141217
  Transmission Date: 20150529
  Serious: Yes (Hospitalization, Other)
  Sender: FDA-Public Use
  Company Number: US-BEH-2014047158

PATIENT
  Sex: Female
  Weight: 46 kg

DRUGS (19)
  1. HEPARIN [Concomitant]
     Active Substance: HEPARIN SODIUM
  2. FORTEO [Concomitant]
     Active Substance: TERIPARATIDE
  3. SINGULAIR [Concomitant]
     Active Substance: MONTELUKAST SODIUM
  4. VANCOMYCIN [Concomitant]
     Active Substance: VANCOMYCIN
  5. TRICOR [Concomitant]
     Active Substance: FENOFIBRATE
  6. TRIAMTERENE/HYDROCHLORTHIAZIDE [Concomitant]
  7. DIPHENHYDRAMINE [Concomitant]
     Active Substance: DIPHENHYDRAMINE
  8. EPIPEN [Concomitant]
     Active Substance: EPINEPHRINE
  9. FENTANYL. [Concomitant]
     Active Substance: FENTANYL
  10. PREDNISONE. [Concomitant]
     Active Substance: PREDNISONE
  11. TOPAMAX [Concomitant]
     Active Substance: TOPIRAMATE
  12. TYLENOL [Concomitant]
     Active Substance: ACETAMINOPHEN
  13. LYRICA [Concomitant]
     Active Substance: PREGABALIN
  14. ROCEPHIN [Concomitant]
     Active Substance: CEFTRIAXONE SODIUM
  15. AVELOX [Concomitant]
     Active Substance: MOXIFLOXACIN HYDROCHLORIDE
  16. BUPROPION [Concomitant]
     Active Substance: BUPROPION
  17. ZEMAIRA [Suspect]
     Active Substance: .ALPHA.1-PROTEINASE INHIBITOR HUMAN
     Indication: ALPHA-1 ANTI-TRYPSIN DEFICIENCY
     Route: 042
  18. SODIUM CHLORIDE. [Concomitant]
     Active Substance: SODIUM CHLORIDE
  19. DALIRESP [Concomitant]
     Active Substance: ROFLUMILAST

REACTIONS (1)
  - Myocardial infarction [Unknown]
